FAERS Safety Report 8902321 (Version 1)
Quarter: 2012Q4

REPORT INFORMATION
  Report Type: 
  Country: IT (occurrence: IT)
  Receive Date: 20121113
  Receipt Date: 20121113
  Transmission Date: 20130627
  Serious: Yes (Hospitalization)
  Sender: FDA-Public Use
  Company Number: IT-PFIZER INC-2012282097

PATIENT
  Age: 76 Year
  Sex: Female

DRUGS (4)
  1. FRAGMIN [Suspect]
     Indication: VENOUS THROMBOEMBOLISM PROPHYLAXIS
     Dosage: 5000 IU, 1x/day
     Route: 058
     Dates: start: 20120701, end: 20121017
  2. QUETIAPINE [Concomitant]
     Dosage: 400 mg, UNK
     Route: 048
  3. MADOPAR [Concomitant]
     Dosage: 500 mg, UNK
     Route: 048
  4. DEPAKIN [Concomitant]
     Dosage: 1000 mg, UNK
     Route: 048

REACTIONS (2)
  - Jaundice [Recovering/Resolving]
  - Transaminases increased [Recovering/Resolving]
